FAERS Safety Report 5825753-7 (Version None)
Quarter: 2008Q3

REPORT INFORMATION
  Report Type: 
  Country: None (occurrence: None)
  Receive Date: 20080728
  Receipt Date: 20080728
  Transmission Date: 20090109
  Serious: Yes (Other)
  Sender: FDA-Public Use
  Company Number: None

PATIENT
  Age: 29 Year
  Sex: Female
  Weight: 77.1115 kg

DRUGS (1)
  1. YAZ [Suspect]
     Indication: CONTRACEPTION
     Dosage: 1 PILL DAILY PO
     Route: 048
     Dates: start: 20071001, end: 20071130

REACTIONS (11)
  - ANXIETY [None]
  - BASEDOW'S DISEASE [None]
  - FATIGUE [None]
  - FREQUENT BOWEL MOVEMENTS [None]
  - GOITRE [None]
  - HEART RATE INCREASED [None]
  - HYPERHIDROSIS [None]
  - HYPOMENORRHOEA [None]
  - INSOMNIA [None]
  - MUSCULAR WEAKNESS [None]
  - TREMOR [None]
